FAERS Safety Report 11724238 (Version 5)
Quarter: 2016Q1

REPORT INFORMATION
  Report Type: Spontaneous
  Country: US (occurrence: US)
  Receive Date: 20151111
  Receipt Date: 20160126
  Transmission Date: 20160525
  Serious: No
  Sender: FDA-Public Use
  Company Number: US-PFIZER INC-2015384450

PATIENT
  Age: 51 Year
  Sex: Female
  Weight: 77 kg

DRUGS (15)
  1. GLUCOPHAGE [Concomitant]
     Active Substance: METFORMIN HYDROCHLORIDE
     Dosage: 500 MG, 2X/DAY
     Route: 048
     Dates: start: 20150611
  2. PRISTIQ EXTENDED RELEASE [Suspect]
     Active Substance: DESVENLAFAXINE SUCCINATE
     Indication: DEPRESSION
     Dosage: 50 MG, DAILY
     Route: 048
     Dates: start: 20151117
  3. THORAZINE [Concomitant]
     Active Substance: CHLORPROMAZINE
     Indication: SEIZURE
     Dosage: 10 MG, UNK (EVERY OTHER DAY)
     Route: 048
     Dates: start: 20150504
  4. KLONOPIN [Concomitant]
     Active Substance: CLONAZEPAM
     Indication: ANXIETY
     Dosage: 1 MG, 3X/DAY AS NEEDED
     Route: 048
     Dates: start: 20151228
  5. ASPIRIN (E.C.) [Concomitant]
     Active Substance: ASPIRIN
     Dosage: 81 MG, DAILY
     Route: 048
  6. ZIAC [Concomitant]
     Active Substance: BISOPROLOL FUMARATE\HYDROCHLOROTHIAZIDE
     Dosage: 1 DF, DAILY (BISOPROLOL FUMARATE: 10MG, HYDROCHLOROTHIAZIDE: 6.25MG)
     Route: 048
     Dates: start: 20151029
  7. EXALGO [Concomitant]
     Active Substance: HYDROMORPHONE HYDROCHLORIDE
     Dosage: 16 MG, DAILY
     Route: 048
     Dates: start: 20151230
  8. VICTOZA [Concomitant]
     Active Substance: LIRAGLUTIDE
     Dosage: 0.6 MG, DAILY
     Route: 058
  9. BENTYL [Concomitant]
     Active Substance: DICYCLOMINE HYDROCHLORIDE
     Dosage: 20 MG, AS NEEDED (3 (THREE) TIMES DAILY )
     Route: 048
     Dates: start: 20151123
  10. MEVACOR [Concomitant]
     Active Substance: LOVASTATIN
     Dosage: 20 MG, 1X/DAY
     Route: 048
     Dates: start: 20151229
  11. ROCEPHIN [Concomitant]
     Active Substance: CEFTRIAXONE SODIUM
     Dosage: 1 G, 1X/DAY (EVERY 24 HOURS )
     Route: 042
     Dates: start: 20150413
  12. SODIUM CHLORIDE. [Concomitant]
     Active Substance: SODIUM CHLORIDE
     Dosage: 2 ML, AS NEEDED (INTRACATHETER)
     Dates: start: 20140804
  13. PRISTIQ EXTENDED RELEASE [Suspect]
     Active Substance: DESVENLAFAXINE SUCCINATE
     Indication: ANXIETY
  14. ZOFRAN [Concomitant]
     Active Substance: ONDANSETRON HYDROCHLORIDE
     Indication: NAUSEA
     Dosage: 8 MG, AS NEEDED (EVERY 8 (EIGHT) HOURS AS NEEDED )
     Route: 048
     Dates: start: 20151114
  15. PHENERGAN [Concomitant]
     Active Substance: PROMETHAZINE HYDROCHLORIDE
     Indication: NAUSEA
     Dosage: 25 MG, AS NEEDED (EVERY 6 (SIX) HOURS AS NEEDED )
     Route: 048
     Dates: start: 20150911

REACTIONS (9)
  - Hyperhidrosis [Unknown]
  - Crying [Unknown]
  - Palpitations [Unknown]
  - Anger [Unknown]
  - Malaise [Unknown]
  - Dyspnoea [Unknown]
  - Panic attack [Unknown]
  - Drug withdrawal syndrome [Unknown]
  - Diarrhoea [Unknown]

NARRATIVE: CASE EVENT DATE: 2015
